FAERS Safety Report 11975603 (Version 1)
Quarter: 2016Q1

REPORT INFORMATION
  Report Type: Spontaneous
  Country: DE (occurrence: DE)
  Receive Date: 20160129
  Receipt Date: 20160129
  Transmission Date: 20160526
  Serious: Yes (Hospitalization, Other)
  Sender: FDA-Public Use
  Company Number: DE-SUN PHARMACEUTICAL INDUSTRIES LTD-2016RR-110495

PATIENT

DRUGS (8)
  1. CITALOPRAM [Suspect]
     Active Substance: CITALOPRAM HYDROBROMIDE
     Indication: DEPRESSION
     Dosage: 40 MG, QD, 0-36.1 GESTATIONAL WEEK
     Route: 064
     Dates: start: 20150105, end: 20150915
  2. THYBON [Concomitant]
     Indication: AUTOIMMUNE THYROIDITIS
     Dosage: 20 ?G, QD, 0-36.1 GESTATIONAL WEEK
     Route: 064
     Dates: start: 20150105, end: 20150915
  3. EUTHYROX [Concomitant]
     Active Substance: LEVOTHYROXINE SODIUM
     Indication: AUTOIMMUNE THYROIDITIS
     Dosage: 200 ?G, DAILY, 0-36.1 GESTATIONAL WEEK
     Route: 064
     Dates: start: 20150105, end: 20150915
  4. MEPTID [Concomitant]
     Active Substance: MEPTAZINOL HYDROCHLORIDE
     Indication: PAIN
     Dosage: 100 MG, QD, 36.1 GESTATIONAL WEEK
     Route: 064
     Dates: start: 20150915, end: 20150915
  5. METOPROLOL. [Suspect]
     Active Substance: METOPROLOL
     Indication: HYPERTENSION
     Dosage: 142.5 MG, QD, 0-36.1 GESTATIONAL WEEK
     Route: 064
     Dates: start: 20150105, end: 20150915
  6. FOLSAURE [Concomitant]
     Active Substance: FOLIC ACID
     Indication: PROPHYLAXIS OF NEURAL TUBE DEFECT
     Dosage: 1.3-14.2 GESTATIONAL WEEK
     Route: 064
  7. BUSCOPAN [Concomitant]
     Active Substance: BUTYLSCOPOLAMINE BROMIDE
     Indication: PAIN
     Dosage: 40 MG, QD, 36.1 GESTATIONAL WEEK
     Route: 064
     Dates: start: 20150915, end: 20150915
  8. AMITRIPTYLIN RETARD [Suspect]
     Active Substance: AMITRIPTYLINE
     Indication: DEPRESSION
     Dosage: 75 MG, QD, 0-36.1 GESTATIONAL WEEK
     Route: 064
     Dates: start: 20150105, end: 20150915

REACTIONS (7)
  - Hyperbilirubinaemia neonatal [Recovered/Resolved]
  - Infantile apnoea [Recovered/Resolved]
  - Drug withdrawal syndrome neonatal [Recovered/Resolved]
  - Agitation neonatal [Recovered/Resolved]
  - Hypertonia neonatal [Recovered/Resolved]
  - Bradycardia neonatal [Recovered/Resolved]
  - Respiratory disorder neonatal [Recovered/Resolved]

NARRATIVE: CASE EVENT DATE: 20150915
